FAERS Safety Report 23187834 (Version 1)
Quarter: 2023Q4

REPORT INFORMATION
  Report Type: Spontaneous
  Country: US (occurrence: US)
  Receive Date: 20231115
  Receipt Date: 20231115
  Transmission Date: 20240110
  Serious: Yes (Other)
  Sender: FDA-Public Use
  Company Number: US-PURDUE PHARMA-USA-2023-0305901

PATIENT
  Sex: Female

DRUGS (8)
  1. OXYCONTIN [Suspect]
     Active Substance: OXYCODONE HYDROCHLORIDE
     Indication: Product used for unknown indication
     Dosage: 240 MILLIGRAM, DAILY (10 YEARS)
     Route: 048
     Dates: start: 2011
  2. OXYCONTIN [Suspect]
     Active Substance: OXYCODONE HYDROCHLORIDE
     Dosage: 60 MILLIGRAM
     Route: 048
  3. OXYCONTIN [Suspect]
     Active Substance: OXYCODONE HYDROCHLORIDE
     Dosage: 60 MILLIGRAM(1 TABLET BY MOUTH THREE TIMES A DAY)
     Route: 048
  4. OXYCODONE HYDROCHLORIDE [Suspect]
     Active Substance: OXYCODONE HYDROCHLORIDE
     Indication: Pain
     Dosage: 240 MILLIGRAM, DAILY(17 YEARS)
     Route: 048
     Dates: start: 2011
  5. OXYCODONE HYDROCHLORIDE [Suspect]
     Active Substance: OXYCODONE HYDROCHLORIDE
     Indication: Back pain
     Dosage: 30 MILLIGRAM
     Route: 048
  6. OXYCODONE HYDROCHLORIDE [Suspect]
     Active Substance: OXYCODONE HYDROCHLORIDE
     Indication: Arthralgia
     Dosage: 30 MILLIGRAM(TAKE 1 TABLET BY MOUTH THREE TIMES A DAY IF NEEDED)
     Route: 048
  7. OXYCODONE HYDROCHLORIDE [Suspect]
     Active Substance: OXYCODONE HYDROCHLORIDE
     Dosage: 30 MILLIGRAM(TAKE 1 TABLET BY MOUTH EVERY 4 HOURS IF NEEDED)
     Route: 048
  8. OXYCODONE HYDROCHLORIDE [Suspect]
     Active Substance: OXYCODONE HYDROCHLORIDE
     Dosage: 30 MILLIGRAM(TAKE 1 TABLET BY MOUTH THREE TIMES A DAY)
     Route: 048

REACTIONS (16)
  - Cardiac disorder [Unknown]
  - Cardiac failure congestive [Unknown]
  - Cardiac arrest [Unknown]
  - Tooth loss [Unknown]
  - Overdose [Unknown]
  - Drug dependence [Unknown]
  - Osteoporosis [Unknown]
  - Antisocial behaviour [Unknown]
  - Gambling disorder [Unknown]
  - Loss of personal independence in daily activities [Unknown]
  - Dental caries [Unknown]
  - Fall [Unknown]
  - Depression [Unknown]
  - Emotional poverty [Unknown]
  - Constipation [Unknown]
  - Drug withdrawal syndrome [Unknown]
